FAERS Safety Report 7219078-5 (Version None)
Quarter: 2011Q1

REPORT INFORMATION
  Report Type: 
  Country: None (occurrence: None)
  Receive Date: 20110111
  Receipt Date: 20110105
  Transmission Date: 20110831
  Serious: No
  Sender: FDA-Public Use
  Company Number: US-BIOGENIDEC-2011BI000737

PATIENT
  Age: 63 Year
  Sex: Female

DRUGS (2)
  1. AVONEX [Suspect]
     Indication: MULTIPLE SCLEROSIS
     Route: 030
     Dates: start: 20020101
  2. AVONEX [Suspect]
     Route: 030
     Dates: start: 20030101

REACTIONS (8)
  - GAIT DISTURBANCE [None]
  - HYPERAESTHESIA [None]
  - PAIN IN EXTREMITY [None]
  - SLEEP DISORDER [None]
  - PALLOR [None]
  - HYPOAESTHESIA [None]
  - CHILLS [None]
  - INJECTION SITE PAIN [None]
